FAERS Safety Report 12243581 (Version 2)
Quarter: 2016Q2

REPORT INFORMATION
  Report Type: Spontaneous
  Country: US (occurrence: US)
  Receive Date: 20160406
  Receipt Date: 20160407
  Transmission Date: 20160815
  Serious: Yes (Hospitalization)
  Sender: FDA-Public Use
  Company Number: US-EMERGENT BIOSOLUTIONS-16BA00027SP

PATIENT

DRUGS (16)
  1. DIPHENHYDRAMINE. [Concomitant]
     Active Substance: DIPHENHYDRAMINE
     Dosage: 25 MG, SINGLE
     Route: 042
     Dates: start: 20151227, end: 20151227
  2. SODIUM PHOSPHATE AND SODIUM BIPHOSPHATE [Concomitant]
     Dosage: 15 MMOL, Q2HR
     Dates: start: 20151227, end: 20160111
  3. POTASSIUM CHLORIDE. [Concomitant]
     Active Substance: POTASSIUM CHLORIDE
     Dosage: 10 MEQ, Q1HR
     Route: 042
     Dates: start: 20151227, end: 20151231
  4. ONDANSETRON [Concomitant]
     Active Substance: ONDANSETRON
     Dosage: 4 MG, SINGLE
     Route: 042
     Dates: start: 20151226, end: 20151226
  5. INSULIN REGULAR [Concomitant]
     Active Substance: INSULIN NOS
     Indication: BLOOD GLUCOSE INCREASED
     Dosage: UNK, Q1HR
     Route: 042
     Dates: start: 20151227, end: 20151227
  6. LABETALOL HCL [Concomitant]
     Active Substance: LABETALOL HYDROCHLORIDE
     Indication: HYPERTENSION
     Dosage: 20 MG, Q4HR
     Route: 042
     Dates: start: 20151227, end: 20151229
  7. PROPOFOL. [Concomitant]
     Active Substance: PROPOFOL
     Dosage: UNK
     Route: 042
     Dates: start: 20151228, end: 20151231
  8. PROMETHAZINE [Concomitant]
     Active Substance: PROMETHAZINE\PROMETHAZINE HYDROCHLORIDE
     Dosage: 12.5 MG, SINGLE
     Route: 042
     Dates: start: 20151226, end: 20151226
  9. BAT [Suspect]
     Active Substance: EQUINE BOTULINUM NEUROTOXIN A/B/C/D/E/F/G IMMUNE FAB2
     Indication: BOTULISM
     Dosage: 18 ML, SINGLE
     Route: 042
     Dates: start: 20151228, end: 20151228
  10. METHYLPREDNISOLONE. [Concomitant]
     Active Substance: METHYLPREDNISOLONE
     Dosage: 125 MG, SINGLE
     Route: 042
     Dates: start: 20151227, end: 20151227
  11. DEXTROSE. [Concomitant]
     Active Substance: DEXTROSE
     Indication: BLOOD GLUCOSE DECREASED
     Dosage: 12.5 G, Q4HR
     Dates: start: 20151227, end: 20151227
  12. FENTANYL. [Concomitant]
     Active Substance: FENTANYL
     Indication: PAIN
     Dosage: 25 MCG, Q4HR
     Route: 042
     Dates: start: 20151228, end: 20160101
  13. HEPARIN SODIUM. [Concomitant]
     Active Substance: HEPARIN SODIUM
     Dosage: 5000 UNIT, Q8H
     Route: 058
     Dates: start: 20151227, end: 20151227
  14. MAGNESIUM SULFATE. [Concomitant]
     Active Substance: MAGNESIUM SULFATE
     Dosage: 1 G, Q1HR
     Route: 042
     Dates: start: 20151227, end: 20160111
  15. LACTATED RINGERS [Concomitant]
     Active Substance: CALCIUM CHLORIDE\POTASSIUM CHLORIDE\SODIUM CHLORIDE\SODIUM LACTATE
     Dosage: 10 UNK, UNK
     Route: 042
     Dates: start: 20151227, end: 20160113
  16. SODIUM CHLORIDE. [Concomitant]
     Active Substance: SODIUM CHLORIDE
     Dosage: 125 UNK, UNK
     Route: 042
     Dates: start: 20151227, end: 20151227

REACTIONS (8)
  - Drug ineffective [None]
  - Urinary tract infection [Recovered/Resolved]
  - Pneumonia [Recovered/Resolved]
  - Upper gastrointestinal haemorrhage [None]
  - Gastrointestinal haemorrhage [Recovered/Resolved]
  - Urinary retention [Recovered/Resolved]
  - Pneumonia haemophilus [None]
  - Escherichia urinary tract infection [None]

NARRATIVE: CASE EVENT DATE: 20151228
